FAERS Safety Report 25526022 (Version 3)
Quarter: 2025Q3

REPORT INFORMATION
  Report Type: Spontaneous
  Country: KR (occurrence: KR)
  Receive Date: 20250707
  Receipt Date: 20250811
  Transmission Date: 20251020
  Serious: Yes (Disabling, Other)
  Sender: PFIZER
  Company Number: KR-PFIZER INC-202500133063

PATIENT
  Age: 62 Year
  Sex: Female
  Weight: 44 kg

DRUGS (4)
  1. BAZEDOXIFENE ACETATE\ESTROGENS, CONJUGATED [Suspect]
     Active Substance: BAZEDOXIFENE ACETATE\ESTROGENS, CONJUGATED
     Indication: Osteoporosis
     Dosage: 1 DF, 1X/DAY
     Route: 048
     Dates: start: 20241213
  2. BAZEDOXIFENE ACETATE\ESTROGENS, CONJUGATED [Suspect]
     Active Substance: BAZEDOXIFENE ACETATE\ESTROGENS, CONJUGATED
     Dosage: 1 DF, 1X/DAY
     Route: 048
     Dates: end: 20250729
  3. ACECLOFENAC [Concomitant]
     Active Substance: ACECLOFENAC
     Indication: Pain management
     Dosage: 1 DF, 2X/DAY
  4. STILLEN [Concomitant]
     Indication: Prophylaxis
     Dosage: 1 DF, 3X/DAY

REACTIONS (2)
  - Osteomyelitis [Not Recovered/Not Resolved]
  - Disease progression [Not Recovered/Not Resolved]

NARRATIVE: CASE EVENT DATE: 20250101
